FAERS Safety Report 9435489 (Version 1)
Quarter: 2013Q3

REPORT INFORMATION
  Report Type: Report from Study
  Country: US (occurrence: US)
  Receive Date: 20130801
  Receipt Date: 20130801
  Transmission Date: 20140515
  Serious: Yes (Other)
  Sender: FDA-Public Use
  Company Number: US-BRISTOL-MYERS SQUIBB COMPANY-19146166

PATIENT
  Age: 48 Year
  Sex: Female
  Weight: 40 kg

DRUGS (2)
  1. IPILIMUMAB [Suspect]
     Indication: CERVIX CARCINOMA
     Dosage: DATE OF LAST DOSE: 11-JUL-2013
     Route: 042
     Dates: start: 20130328
  2. CISPLATIN [Suspect]
     Indication: CERVIX CARCINOMA
     Dosage: LAST DOSE DATE: 02/MAY/2013.
     Route: 042
     Dates: start: 20130528

REACTIONS (1)
  - Vomiting [Recovered/Resolved]
